FAERS Safety Report 26110490 (Version 1)
Quarter: 2025Q4

REPORT INFORMATION
  Report Type: Spontaneous
  Country: EU (occurrence: EU)
  Receive Date: 20251202
  Receipt Date: 20251202
  Transmission Date: 20260118
  Serious: Yes (Other)
  Sender: AMGEN
  Company Number: EU-AMGEN-DEUSP2025235597

PATIENT
  Age: 76 Year
  Sex: Female

DRUGS (1)
  1. PROLIA [Suspect]
     Active Substance: DENOSUMAB
     Indication: Osteoporosis
     Dosage: UNK, Q6MO
     Route: 065
     Dates: start: 2016, end: 20250505

REACTIONS (4)
  - Thrombosis [Unknown]
  - Adhesive tape use [Unknown]
  - Forearm fracture [Unknown]
  - Fall [Unknown]

NARRATIVE: CASE EVENT DATE: 20230701
